FAERS Safety Report 12752577 (Version 1)
Quarter: 2016Q3

REPORT INFORMATION
  Report Type: Spontaneous
  Country: US (occurrence: US)
  Receive Date: 20160915
  Receipt Date: 20160915
  Transmission Date: 20161109
  Serious: No
  Sender: FDA-Public Use
  Company Number: US-ASTELLAS-2015US037042

PATIENT
  Age: 66 Year
  Sex: Male

DRUGS (1)
  1. XTANDI [Suspect]
     Active Substance: ENZALUTAMIDE
     Indication: PROSTATE CANCER
     Dosage: 160 MG (4 CAPSULES), ONCE DAILY
     Route: 048
     Dates: start: 20150728

REACTIONS (8)
  - Musculoskeletal pain [Recovered/Resolved]
  - Drug ineffective [Unknown]
  - Muscle spasms [Recovered/Resolved]
  - Pain in extremity [Not Recovered/Not Resolved]
  - Hypoaesthesia [Recovering/Resolving]
  - Arthralgia [Not Recovered/Not Resolved]
  - Hypoaesthesia [Recovering/Resolving]
  - Paraesthesia [Recovering/Resolving]

NARRATIVE: CASE EVENT DATE: 20151203
